FAERS Safety Report 17900130 (Version 1)
Quarter: 2020Q2

REPORT INFORMATION
  Report Type: Spontaneous
  Country: US (occurrence: US)
  Receive Date: 20200616
  Receipt Date: 20200616
  Transmission Date: 20200714
  Serious: Yes (Other)
  Sender: FDA-Public Use
  Company Number: US-ACS-001726

PATIENT
  Age: 59 Year
  Sex: Male
  Weight: 65 kg

DRUGS (5)
  1. DORNASE ALFA. [Concomitant]
     Active Substance: DORNASE ALFA
     Indication: EMPYEMA
     Dosage: VIA CHEST TUBE
     Route: 034
  2. TISSUE PLASMINOGEN ACTIVATOR [Concomitant]
     Active Substance: ALTEPLASE
     Indication: EMPYEMA
     Dosage: VIA CHEST TUBE
     Route: 034
  3. VANCOMYCIN [Concomitant]
     Active Substance: VANCOMYCIN
     Indication: EMPYEMA
     Dosage: 1250 MG LOADING DOSE FOLLOWED BY 500 MG ONCE THE FOLLOWING DAY
     Route: 042
  4. ERTAPENEM. [Suspect]
     Active Substance: ERTAPENEM SODIUM
     Indication: EMPYEMA
     Dosage: 500 MG/24H INCREASED TO 1000 MG DAILY ON HOSPITAL DAY 8
     Route: 042
  5. BUPROPION. [Concomitant]
     Active Substance: BUPROPION
     Route: 065

REACTIONS (5)
  - Delirium [Recovered/Resolved]
  - Toxic encephalopathy [Recovered/Resolved]
  - Insomnia [Recovered/Resolved]
  - Off label use [Recovered/Resolved]
  - Agitation [Recovered/Resolved]
